FAERS Safety Report 8588741-6 (Version None)
Quarter: 2012Q3

REPORT INFORMATION
  Report Type: 
  Country: None (occurrence: None)
  Receive Date: 20120813
  Receipt Date: 20120803
  Transmission Date: 20120928
  Serious: Yes (Hospitalization)
  Sender: FDA-Public Use
  Company Number: JP-JNJFOC-20120605608

PATIENT
  Age: 4 Decade
  Sex: Female

DRUGS (9)
  1. INVEGA [Suspect]
     Indication: SCHIZOPHRENIA
     Route: 048
     Dates: start: 20120401, end: 20120401
  2. SEDIEL [Concomitant]
     Route: 048
  3. SORENTMIN [Concomitant]
     Route: 048
  4. ROHYPNOL [Concomitant]
     Route: 048
  5. TRICHLORMETHIAZIDE [Concomitant]
     Route: 048
  6. CLONAZEPAM [Concomitant]
     Route: 048
  7. SEROQUEL [Concomitant]
     Route: 048
  8. AMLODIPINE [Concomitant]
     Route: 048
  9. DEPAKENE [Concomitant]
     Route: 048

REACTIONS (1)
  - DERMATITIS INFECTED [None]
